FAERS Safety Report 4266814-6 (Version None)
Quarter: 2004Q1

REPORT INFORMATION
  Report Type: 
  Country: None (occurrence: None)
  Receive Date: 20040108
  Receipt Date: 20030514
  Transmission Date: 20041129
  Serious: No
  Sender: FDA-Public Use
  Company Number: US-GLAXOSMITHKLINE-A0408505A

PATIENT
  Age: 37 Year
  Sex: Male

DRUGS (4)
  1. EPIVIR [Suspect]
     Indication: HIV INFECTION
     Dosage: 300MG PER DAY
     Route: 048
     Dates: start: 20030513
  2. VIREAD [Suspect]
     Indication: HIV INFECTION
     Dosage: 300MG PER DAY
     Route: 065
     Dates: start: 20030513
  3. SUSTIVA [Suspect]
     Indication: HIV INFECTION
     Dosage: 600MG PER DAY
     Route: 065
     Dates: start: 20030513
  4. BACTRIM [Concomitant]

REACTIONS (8)
  - ANXIETY [None]
  - DIZZINESS [None]
  - FALL [None]
  - FEELING ABNORMAL [None]
  - HALLUCINATION [None]
  - HANGOVER [None]
  - INSOMNIA [None]
  - PALPITATIONS [None]
